FAERS Safety Report 4550849-X (Version None)
Quarter: 2004Q4

REPORT INFORMATION
  Report Type: 
  Country: None (occurrence: None)
  Receive Date: 20041217
  Receipt Date: 20041006
  Transmission Date: 20050328
  Serious: No
  Sender: FDA-Public Use
  Company Number: 2004-BP-09740BP(0)

PATIENT
  Age: 62 Year
  Sex: Female

DRUGS (10)
  1. SPIRIVA [Suspect]
     Indication: CHRONIC OBSTRUCTIVE AIRWAYS DISEASE
     Dosage: 18 MCG (18 MCG), IH
     Route: 055
     Dates: start: 20040922
  2. TEQUIN [Suspect]
     Indication: INFECTION
     Dates: start: 20040919, end: 20040925
  3. PENICILLIN [Suspect]
     Dates: start: 20040909
  4. ADVAIR (SERETIDE MITE) [Concomitant]
  5. ALBUTEROL [Concomitant]
  6. CLONAZEPAM [Concomitant]
  7. TAMOXIFEN (TAMOXIFEN) [Concomitant]
  8. LEXAPRO [Concomitant]
  9. ACIPHEX [Concomitant]
  10. VALTREX [Concomitant]

REACTIONS (4)
  - CANDIDIASIS [None]
  - COUGH [None]
  - DIARRHOEA [None]
  - HOARSENESS [None]
